FAERS Safety Report 9795554 (Version 1)
Quarter: 2014Q1

REPORT INFORMATION
  Report Type: Spontaneous
  Country: US (occurrence: US)
  Receive Date: 20140103
  Receipt Date: 20140103
  Transmission Date: 20141002
  Serious: Yes (Other)
  Sender: FDA-Public Use
  Company Number: US-BAYER-2014-000779

PATIENT
  Age: 28 Year
  Sex: Female
  Weight: 68 kg

DRUGS (4)
  1. YAZ [Suspect]
     Indication: CONTRACEPTION
  2. YASMIN [Suspect]
  3. CEFTIN [Concomitant]
     Dosage: 500 MG, BID UNTIL GONE [DISPENSE] 20
     Dates: start: 20080213
  4. VICODIN [Concomitant]

REACTIONS (1)
  - Deep vein thrombosis [None]
